FAERS Safety Report 22588164 (Version 1)
Quarter: 2023Q2

REPORT INFORMATION
  Report Type: Other
  Country: HN (occurrence: HN)
  Receive Date: 20230612
  Receipt Date: 20230612
  Transmission Date: 20230721
  Serious: No
  Sender: FDA-Public Use
  Company Number: HN-TOLMAR, INC.-23HN040985

PATIENT
  Sex: Female

DRUGS (1)
  1. ELIGARD [Suspect]
     Active Substance: LEUPROLIDE ACETATE
     Indication: Precocious puberty
     Dosage: 45 MILLIGRAM, Q 6 MONTH
     Route: 058

REACTIONS (1)
  - Intentional product use issue [Not Recovered/Not Resolved]
